FAERS Safety Report 18442800 (Version 26)
Quarter: 2022Q2

REPORT INFORMATION
  Report Type: Report from Study
  Country: CA (occurrence: CA)
  Receive Date: 20201029
  Receipt Date: 20220615
  Transmission Date: 20220721
  Serious: Yes (Other)
  Sender: FDA-Public Use
  Company Number: CA-BRISTOL-MYERS SQUIBB COMPANY-BMS-2020-082597

PATIENT
  Age: 57 Year
  Sex: Female

DRUGS (21)
  1. OPDIVO [Suspect]
     Active Substance: NIVOLUMAB
     Indication: Pleural mesothelioma
     Dosage: 210 MILLIGRAM (3 MG/KG), Q2WK
     Route: 042
     Dates: start: 20200928
  2. OPDIVO [Suspect]
     Active Substance: NIVOLUMAB
     Dosage: 222 MILLIGRAM, Q2WK
     Route: 042
  3. OPDIVO [Suspect]
     Active Substance: NIVOLUMAB
     Dosage: 750 MILLIGRAM, Q4WK
     Route: 042
  4. OPDIVO [Suspect]
     Active Substance: NIVOLUMAB
     Dosage: 222 MILLIGRAM, Q2WK?BATCH NUMBER: ABW5224/ABZ4259 ?EXPIRY DATE: JAN-2024
     Route: 042
     Dates: start: 20201027
  5. OPDIVO [Suspect]
     Active Substance: NIVOLUMAB
     Dosage: 222 MILLIGRAM, Q2WK
     Route: 042
     Dates: start: 20211012
  6. OPDIVO [Suspect]
     Active Substance: NIVOLUMAB
     Dosage: 222 MILLIGRAM, Q2WK
     Route: 042
     Dates: start: 20200928
  7. OPDIVO [Suspect]
     Active Substance: NIVOLUMAB
     Route: 065
     Dates: start: 20220301
  8. YERVOY [Suspect]
     Active Substance: IPILIMUMAB
     Indication: Pleural mesothelioma
     Dosage: 70 MILLIGRAM (1 MG/KG), Q2WK
     Route: 042
     Dates: start: 20200928
  9. YERVOY [Suspect]
     Active Substance: IPILIMUMAB
     Dosage: 74 MILLIGRAM, Q6WK
     Route: 042
     Dates: start: 20200928
  10. YERVOY [Suspect]
     Active Substance: IPILIMUMAB
     Dosage: 74 MILLIGRAM, Q6WK?(1MG/KG), Q6WK, BATCH NUMBER: ABX8391, EXPIRY DATE: 01-JAN-2024
     Route: 042
     Dates: start: 20201027
  11. YERVOY [Suspect]
     Active Substance: IPILIMUMAB
     Dosage: 74 MILLIGRAM, Q6WK
     Route: 042
     Dates: start: 20211012
  12. YERVOY [Suspect]
     Active Substance: IPILIMUMAB
     Route: 065
     Dates: start: 20220301
  13. TYLENOL [Concomitant]
     Active Substance: ACETAMINOPHEN
     Indication: Product used for unknown indication
     Dosage: UNK
     Route: 048
  14. CALCIUM [Concomitant]
     Active Substance: CALCIUM
     Indication: Product used for unknown indication
     Route: 065
  15. HYDROMORPHONE [Concomitant]
     Active Substance: HYDROMORPHONE
     Indication: Product used for unknown indication
     Dosage: DAILY
     Route: 048
  16. PREGABALIN [Concomitant]
     Active Substance: PREGABALIN
     Indication: Product used for unknown indication
     Dosage: 75 MILLIGRAM
     Route: 048
  17. BENADRYL [Concomitant]
     Active Substance: DIPHENHYDRAMINE HYDROCHLORIDE
     Indication: Product used for unknown indication
     Dosage: 25 MILLIGRAM PRE- INFUSION
     Route: 065
  18. DIPHENHYDRAMINE [Concomitant]
     Active Substance: DIPHENHYDRAMINE
     Indication: Product used for unknown indication
     Dosage: 25 MILLIGRAM
     Route: 065
  19. CHOLECALCIFEROL [Concomitant]
     Active Substance: CHOLECALCIFEROL
     Indication: Product used for unknown indication
     Dosage: 10000 INTERNATIONAL UNIT
     Route: 048
  20. KADIAN [Concomitant]
     Active Substance: MORPHINE SULFATE
     Indication: Product used for unknown indication
     Dosage: 10 MILLIGRAM
     Route: 048
  21. MORPHINE SULFATE [Concomitant]
     Active Substance: MORPHINE SULFATE
     Indication: Product used for unknown indication
     Dosage: 5 MILLIGRAM
     Route: 048

REACTIONS (48)
  - Pulmonary oedema [Unknown]
  - Papule [Recovering/Resolving]
  - Hypoaesthesia [Unknown]
  - Dyspnoea [Not Recovered/Not Resolved]
  - Dizziness [Recovered/Resolved]
  - Pyrexia [Recovered/Resolved]
  - Fatigue [Not Recovered/Not Resolved]
  - Headache [Recovered/Resolved]
  - Muscular weakness [Recovered/Resolved]
  - Pain in extremity [Recovered/Resolved]
  - Palpitations [Not Recovered/Not Resolved]
  - Vision blurred [Recovered/Resolved]
  - Pruritus [Recovering/Resolving]
  - Erythema [Recovering/Resolving]
  - Skin exfoliation [Recovered/Resolved]
  - Ocular hyperaemia [Recovered/Resolved]
  - Weight increased [Not Recovered/Not Resolved]
  - Tinnitus [Recovered/Resolved]
  - Memory impairment [Not Recovered/Not Resolved]
  - Gait disturbance [Recovering/Resolving]
  - Joint stiffness [Recovering/Resolving]
  - Faeces hard [Not Recovered/Not Resolved]
  - Feeling hot [Recovered/Resolved]
  - Contusion [Unknown]
  - Musculoskeletal stiffness [Not Recovered/Not Resolved]
  - Chest discomfort [Not Recovered/Not Resolved]
  - Pain [Not Recovered/Not Resolved]
  - Paraesthesia [Not Recovered/Not Resolved]
  - Faeces soft [Not Recovered/Not Resolved]
  - Injection site erythema [Recovered/Resolved]
  - Heart rate decreased [Unknown]
  - Rash erythematous [Recovered/Resolved]
  - Prescribed underdose [Unknown]
  - Nasal congestion [Recovered/Resolved]
  - Feeling abnormal [Recovered/Resolved]
  - Thirst [Unknown]
  - Breast mass [Unknown]
  - Periarthritis [Unknown]
  - Urticaria [Recovered/Resolved]
  - Hypersensitivity [Unknown]
  - Myopia [Unknown]
  - Dry skin [Recovered/Resolved]
  - Intentional product use issue [Unknown]
  - Rash [Not Recovered/Not Resolved]
  - Lymphadenopathy [Not Recovered/Not Resolved]
  - Constipation [Not Recovered/Not Resolved]
  - Joint swelling [Recovered/Resolved]
  - Visual impairment [Unknown]

NARRATIVE: CASE EVENT DATE: 20200928
